FAERS Safety Report 9986766 (Version 1)
Quarter: 2014Q1

REPORT INFORMATION
  Report Type: Report from Study
  Country: US (occurrence: US)
  Receive Date: 20140307
  Receipt Date: 20140307
  Transmission Date: 20141002
  Serious: No
  Sender: FDA-Public Use
  Company Number: US-ABBVIE-13P-163-1080868-00

PATIENT
  Age: 71 Year
  Sex: Female

DRUGS (13)
  1. HUMIRA [Suspect]
     Indication: PSORIASIS
     Dates: start: 20130109, end: 20130109
  2. METFORMIN [Concomitant]
     Indication: DIABETES MELLITUS
     Dosage: 2 TABLETS IN AM, 1 TABLET IN PM
  3. GLIMEPIRIDE [Concomitant]
     Indication: DIABETES MELLITUS
  4. CARVEDILOL [Concomitant]
     Indication: CARDIAC FAILURE
  5. CARVEDILOL [Concomitant]
     Indication: BLOOD PRESSURE INCREASED
  6. FUROSEMIDE [Concomitant]
     Indication: CARDIAC FAILURE
  7. FUROSEMIDE [Concomitant]
     Indication: BLOOD PRESSURE INCREASED
  8. NIFEDIPINE [Concomitant]
     Indication: CARDIAC FAILURE
  9. NIFEDIPINE [Concomitant]
     Indication: BLOOD PRESSURE INCREASED
  10. ASA [Concomitant]
     Indication: CARDIAC FAILURE
  11. ASA [Concomitant]
     Indication: BLOOD PRESSURE INCREASED
  12. PRAVASTATIN [Concomitant]
     Indication: CARDIAC FAILURE
  13. PRAVASTATIN [Concomitant]
     Indication: BLOOD PRESSURE INCREASED

REACTIONS (11)
  - Skin disorder [Not Recovered/Not Resolved]
  - Skin induration [Not Recovered/Not Resolved]
  - Joint crepitation [Not Recovered/Not Resolved]
  - Skin exfoliation [Not Recovered/Not Resolved]
  - Dry skin [Not Recovered/Not Resolved]
  - Erythema [Not Recovered/Not Resolved]
  - Skin discolouration [Not Recovered/Not Resolved]
  - Rash pruritic [Not Recovered/Not Resolved]
  - Skin lesion [Not Recovered/Not Resolved]
  - Hair texture abnormal [Not Recovered/Not Resolved]
  - Injection site bruising [Recovered/Resolved]
